FAERS Safety Report 8425279-0 (Version None)
Quarter: 2012Q2

REPORT INFORMATION
  Report Type: 
  Country: None (occurrence: None)
  Receive Date: 20120611
  Receipt Date: 20120531
  Transmission Date: 20120825
  Serious: Yes (Other)
  Sender: FDA-Public Use
  Company Number: CA-US-EMD SERONO, INC.-7137498

PATIENT
  Sex: Female

DRUGS (3)
  1. DIANE 35 [Concomitant]
     Indication: PRODUCT USED FOR UNKNOWN INDICATION
  2. DILANTIN [Concomitant]
     Indication: PRODUCT USED FOR UNKNOWN INDICATION
  3. REBIF [Suspect]
     Indication: MULTIPLE SCLEROSIS
     Route: 058
     Dates: start: 20110908

REACTIONS (5)
  - EYE HAEMORRHAGE [None]
  - MENSTRUATION IRREGULAR [None]
  - INJECTION SITE HAEMATOMA [None]
  - DIARRHOEA [None]
  - INJECTION SITE ERYTHEMA [None]
